FAERS Safety Report 6358193-5 (Version None)
Quarter: 2009Q3

REPORT INFORMATION
  Report Type: 
  Country: None (occurrence: None)
  Receive Date: 20090916
  Receipt Date: 20090911
  Transmission Date: 20100115
  Serious: Yes (Hospitalization, Other)
  Sender: FDA-Public Use
  Company Number: US-ELI_LILLY_AND_COMPANY-US200909002758

PATIENT
  Sex: Female

DRUGS (11)
  1. HUMULIN 70/30 [Suspect]
     Dosage: UNK, UNK
  2. HUMULIN 70/30 [Suspect]
     Dosage: UNK, UNKNOWN
  3. INSULIN [Concomitant]
     Dates: start: 20080901
  4. PLAVIX [Concomitant]
  5. ASPIRIN [Concomitant]
     Dosage: 81 MG, UNK
  6. ALLERGY MEDICATION [Concomitant]
  7. ACTOS [Concomitant]
     Dosage: 45 MG, UNK
  8. WATER PILLS [Concomitant]
     Dosage: 40 MG, UNK
  9. CELEBREX [Concomitant]
     Dosage: 200 MG, 2/D
  10. METFORMIN HCL [Concomitant]
     Dosage: 500 MG, 2/D
  11. LORAZEPAM [Concomitant]
     Dosage: UNK, AS NEEDED

REACTIONS (16)
  - BACK PAIN [None]
  - DECREASED ACTIVITY [None]
  - FALL [None]
  - FOOT FRACTURE [None]
  - GAIT DISTURBANCE [None]
  - GOUT [None]
  - HOSPITALISATION [None]
  - HYPERSOMNIA [None]
  - JOINT INJURY [None]
  - KNEE OPERATION [None]
  - LIMB INJURY [None]
  - MENTAL DISORDER [None]
  - OEDEMA PERIPHERAL [None]
  - PAIN IN EXTREMITY [None]
  - STENT PLACEMENT [None]
  - UPPER LIMB FRACTURE [None]
